FAERS Safety Report 8870278 (Version 1)
Quarter: 2012Q4

REPORT INFORMATION
  Report Type: 
  Country: JP (occurrence: JP)
  Receive Date: 20121026
  Receipt Date: 20121026
  Transmission Date: 20130627
  Serious: Yes (Hospitalization)
  Sender: FDA-Public Use
  Company Number: JP-009507513-1208JPN010143

PATIENT
  Age: 84 Year
  Sex: Female
  Weight: 35 kg

DRUGS (2)
  1. FOSAMAC TABLETS-5 [Suspect]
     Indication: OSTEOPOROSIS
     Dosage: 5 mg, qd
     Route: 048
     Dates: start: 1995
  2. AMLODIPINE [Suspect]
     Route: 048

REACTIONS (2)
  - Atypical femur fracture [Recovering/Resolving]
  - Atypical femur fracture [Recovering/Resolving]
